FAERS Safety Report 5271100-1 (Version None)
Quarter: 2007Q1

REPORT INFORMATION
  Report Type: 
  Country: None (occurrence: None)
  Receive Date: 20070321
  Receipt Date: 20070313
  Transmission Date: 20070707
  Serious: Yes (Other)
  Sender: FDA-Public Use
  Company Number: GB-GLAXOSMITHKLINE-B0462834A

PATIENT
  Age: 36 Year
  Sex: Male
  Weight: 90 kg

DRUGS (1)
  1. ZYBAN [Suspect]
     Route: 048
     Dates: start: 20070226, end: 20070226

REACTIONS (1)
  - IMPAIRED WORK ABILITY [None]
